FAERS Safety Report 11157727 (Version 1)
Quarter: 2015Q2

REPORT INFORMATION
  Report Type: Spontaneous
  Country: US (occurrence: None)
  Receive Date: 20150601
  Receipt Date: 20150601
  Transmission Date: 20150821
  Serious: Yes (Life-Threatening, Hospitalization, Other)
  Sender: FDA-Public Use
  Company Number: GEL2015001

PATIENT
  Sex: Female

DRUGS (5)
  1. GELUSIL [Suspect]
     Active Substance: ALUMINUM HYDROXIDE\DIMETHICONE\MAGNESIUM HYDROXIDE\SILICON DIOXIDE
     Indication: GASTROOESOPHAGEAL REFLUX DISEASE
     Dosage: 300 TABLETS/WEEK
  2. LAXATIVES [Concomitant]
     Active Substance: UNSPECIFIED INGREDIENT
  3. ANTI-DIARRHEAL PRODUCT [Concomitant]
  4. ANTI-DEPRESANTS [Concomitant]
  5. PAIN MEDICATION [Concomitant]
     Active Substance: UNSPECIFIED INGREDIENT

REACTIONS (6)
  - Coma [None]
  - Hospitalisation [None]
  - Blood sodium decreased [None]
  - Drug dependence [None]
  - Memory impairment [None]
  - Gastric disorder [None]
